FAERS Safety Report 18216012 (Version 1)
Quarter: 2020Q3

REPORT INFORMATION
  Report Type: Spontaneous
  Country: US (occurrence: US)
  Receive Date: 20200901
  Receipt Date: 20200901
  Transmission Date: 20201103
  Serious: No
  Sender: FDA-Public Use
  Company Number: US-SA-2020SA233563

PATIENT

DRUGS (1)
  1. PRALUENT [Suspect]
     Active Substance: ALIROCUMAB
     Indication: TYPE IIA HYPERLIPIDAEMIA
     Dosage: 75 MG, Q2W
     Route: 058
     Dates: start: 20200821

REACTIONS (6)
  - Musculoskeletal stiffness [Unknown]
  - Feeling abnormal [Unknown]
  - Dysphonia [Unknown]
  - Sinus pain [Unknown]
  - Headache [Unknown]
  - Influenza [Unknown]

NARRATIVE: CASE EVENT DATE: 20200821
